FAERS Safety Report 7190158-6 (Version None)
Quarter: 2010Q4

REPORT INFORMATION
  Report Type: 
  Country: None (occurrence: None)
  Receive Date: 20101210
  Receipt Date: 20101125
  Transmission Date: 20110411
  Serious: Yes (Other)
  Sender: FDA-Public Use
  Company Number: IDA-00464

PATIENT
  Age: 57 Year
  Sex: Female

DRUGS (2)
  1. PROPRANOLOL [Suspect]
     Indication: HYPERTENSION
     Dosage: 100 MG DAILY ORAL
     Route: 048
     Dates: start: 20000101, end: 20040101
  2. ZOCOR [Concomitant]

REACTIONS (1)
  - WEIGHT INCREASED [None]
